FAERS Safety Report 7243005-8 (Version None)
Quarter: 2011Q1

REPORT INFORMATION
  Report Type: 
  Country: None (occurrence: None)
  Receive Date: 20110125
  Receipt Date: 20110117
  Transmission Date: 20110831
  Serious: Yes (Death, Hospitalization)
  Sender: FDA-Public Use
  Company Number: US-JNJFOC-20101005411

PATIENT
  Sex: Male
  Weight: 78.47 kg

DRUGS (10)
  1. REMICADE [Suspect]
     Indication: CROHN'S DISEASE
     Route: 042
  2. REMICADE [Suspect]
     Route: 042
  3. REMICADE [Suspect]
     Route: 042
  4. AUGMENTIN '125' [Concomitant]
     Indication: CROHN'S DISEASE
     Route: 048
  5. PERCOCET [Concomitant]
     Indication: PAIN
  6. IMURAN [Concomitant]
     Indication: CROHN'S DISEASE
  7. REMICADE [Suspect]
     Route: 042
  8. ENTOCORT EC [Concomitant]
     Indication: CROHN'S DISEASE
     Dosage: LESS THAN 12 MONTHS
  9. STEROIDS NOS [Concomitant]
     Indication: CROHN'S DISEASE
     Dosage: OFF AND ON
  10. METRONIDAZOLE [Concomitant]
     Indication: CROHN'S DISEASE

REACTIONS (1)
  - ACUTE LYMPHOCYTIC LEUKAEMIA [None]
